FAERS Safety Report 5857560-3 (Version None)
Quarter: 2008Q3

REPORT INFORMATION
  Report Type: 
  Country: None (occurrence: None)
  Receive Date: 20080825
  Receipt Date: 20080825
  Transmission Date: 20090109
  Serious: Yes (Death)
  Sender: FDA-Public Use
  Company Number: None

PATIENT
  Age: 52 Year
  Sex: Male
  Weight: 88.4514 kg

DRUGS (4)
  1. EFFEXOR XR [Suspect]
     Indication: DEPRESSION
     Dosage: ONE A DAY FOR SEVEN DAYS
     Dates: start: 20071023, end: 20071105
  2. EFFEXOR XR [Suspect]
     Dosage: ONE A DAY THEN AFTER
  3. NORTRIPTYLINE HCL [Concomitant]
  4. LUNESTA [Concomitant]

REACTIONS (1)
  - COMPLETED SUICIDE [None]
